FAERS Safety Report 23401780 (Version 2)
Quarter: 2024Q1

REPORT INFORMATION
  Report Type: Report from Study
  Country: US (occurrence: US)
  Receive Date: 20240115
  Receipt Date: 20240207
  Transmission Date: 20240410
  Serious: Yes (Other)
  Sender: FDA-Public Use
  Company Number: US-UCBSA-2023059793

PATIENT
  Age: 21 Year
  Sex: Male

DRUGS (3)
  1. FINTEPLA [Suspect]
     Active Substance: FENFLURAMINE
     Indication: Epilepsy
     Dosage: 5 ML BY MOUTH EVERY MORNING, THEN 1.8 ML EVERY AFTERNOON, THEN 5 ML EVERY EVENING.
     Route: 048
     Dates: start: 20210903
  2. FINTEPLA [Suspect]
     Active Substance: FENFLURAMINE
     Indication: Off label use
     Dosage: 5.31 MILLILITER (11.8 MG/DAY)
     Route: 048
  3. FINTEPLA [Suspect]
     Active Substance: FENFLURAMINE
     Dosage: 5 ML QAM, 1.8 ML QPM AND 5 ML QHS
     Route: 048

REACTIONS (6)
  - Echocardiogram abnormal [Not Recovered/Not Resolved]
  - Aortic valve incompetence [Unknown]
  - Tricuspid valve incompetence [Unknown]
  - Mitral valve incompetence [Unknown]
  - Pulmonary valve incompetence [Unknown]
  - Off label use [Unknown]

NARRATIVE: CASE EVENT DATE: 20210903
